FAERS Safety Report 8905624 (Version 1)
Quarter: 2012Q4

REPORT INFORMATION
  Report Type: 
  Country: FR (occurrence: FR)
  Receive Date: 20121111
  Receipt Date: 20121111
  Transmission Date: 20130627
  Serious: Yes (Hospitalization)
  Sender: FDA-Public Use
  Company Number: PHHY2012FR103309

PATIENT
  Sex: Male
  Weight: 54 kg

DRUGS (10)
  1. TASIGNA [Suspect]
     Indication: CHRONIC MYELOID LEUKAEMIA
     Dosage: 400 mg, BID
     Dates: start: 20091216, end: 20110806
  2. TASIGNA [Suspect]
     Dosage: 300 mg, BID
     Dates: start: 20110807, end: 20121005
  3. EZETROL [Concomitant]
     Indication: ARTERIAL DISORDER
     Dosage: 10 mg, daily
  4. PLAVIX [Concomitant]
     Dosage: 75 mg, daily
     Route: 048
  5. ENALAPRIL [Concomitant]
     Dosage: 5 mg, daily
     Route: 048
  6. METFORMIN [Concomitant]
     Dosage: 1000 mg, BID
     Route: 048
  7. SERETIDE DISKUS [Concomitant]
     Dosage: 1 inhalation, BID
  8. SPIRIVA [Concomitant]
  9. INEXIUM [Concomitant]
     Dosage: 1 DF, daily
  10. ASPEGIC [Concomitant]
     Dosage: 100 mg, daily
     Route: 048

REACTIONS (7)
  - Arterial disorder [Recovering/Resolving]
  - Concomitant disease aggravated [Recovering/Resolving]
  - Intermittent claudication [Recovering/Resolving]
  - Arterial occlusive disease [Recovering/Resolving]
  - Arterial stenosis [Recovering/Resolving]
  - Vascular calcification [Recovering/Resolving]
  - Pain in extremity [Recovering/Resolving]
